FAERS Safety Report 18126839 (Version 7)
Quarter: 2020Q4

REPORT INFORMATION
  Report Type: Spontaneous
  Country: CA (occurrence: CA)
  Receive Date: 20200809
  Receipt Date: 20201109
  Transmission Date: 20210113
  Serious: Yes (Hospitalization)
  Sender: FDA-Public Use
  Company Number: CA-CELLTRION INC.-2020CA024840

PATIENT

DRUGS (6)
  1. INFLECTRA [Suspect]
     Active Substance: INFLIXIMAB-DYYB
     Dosage: 10 MG/KG, BOOSTER DOSE 2ND DOSE FOLLOWED BY ANOTHER DOSE AT WEEK 6
     Route: 042
  2. PREDNISONE. [Concomitant]
     Active Substance: PREDNISONE
     Dosage: UNK
     Route: 065
  3. INFLECTRA [Suspect]
     Active Substance: INFLIXIMAB-DYYB
     Indication: COLITIS ULCERATIVE
     Dosage: FIRST 2 DOSES
     Route: 042
     Dates: start: 202006
  4. INFLECTRA [Suspect]
     Active Substance: INFLIXIMAB-DYYB
     Dosage: 600 MG AT WEEK 2, 6, THEN EVERY 8 WEEKS
     Route: 042
     Dates: start: 20200730
  5. INFLECTRA [Suspect]
     Active Substance: INFLIXIMAB-DYYB
     Dosage: 600 MG AT WEEK 2, 6, THEN EVERY 8 WEEKS
     Route: 042
     Dates: start: 20200820
  6. INFLECTRA [Suspect]
     Active Substance: INFLIXIMAB-DYYB
     Dosage: 600 MG AT WEEK 2, 6, THEN EVERY 8 WEEKS
     Route: 042
     Dates: start: 20200918, end: 20200918

REACTIONS (5)
  - Drug ineffective [Unknown]
  - Malaise [Unknown]
  - Pyrexia [Recovered/Resolved]
  - Condition aggravated [Recovering/Resolving]
  - Heart rate increased [Unknown]

NARRATIVE: CASE EVENT DATE: 202007
